FAERS Safety Report 25941809 (Version 1)
Quarter: 2025Q4

REPORT INFORMATION
  Report Type: Spontaneous
  Country: None (occurrence: EU)
  Receive Date: 20251020
  Receipt Date: 20251020
  Transmission Date: 20260117
  Serious: Yes (Death, Other)
  Sender: ALNYLAM PHARMACEUTICALS
  Company Number: EU-ALNYLAM PHARMACEUTICALS, INC.-ALN-2025-006425

PATIENT

DRUGS (2)
  1. OXLUMO [Suspect]
     Active Substance: LUMASIRAN
     Indication: Primary hyperoxaluria
     Dosage: UNK
     Route: 065
  2. VITAMIN B6 [Concomitant]
     Active Substance: PYRIDOXINE HYDROCHLORIDE
     Indication: Product used for unknown indication
     Dosage: UNK
     Route: 065

REACTIONS (12)
  - Death [Fatal]
  - Oxalosis [Unknown]
  - Hepatorenal syndrome [Unknown]
  - Perforation bile duct [Unknown]
  - Pancreatitis [Unknown]
  - Hepatic fibrosis [Unknown]
  - Haemorrhage intracranial [Unknown]
  - Intracranial pressure increased [Unknown]
  - Lactic acidosis [Unknown]
  - Renal and liver transplant [Unknown]
  - Fracture [Unknown]
  - Laboratory test abnormal [Unknown]
